FAERS Safety Report 8407005-4 (Version None)
Quarter: 2012Q2

REPORT INFORMATION
  Report Type: 
  Country: None (occurrence: None)
  Receive Date: 20120529
  Receipt Date: 20081202
  Transmission Date: 20120825
  Serious: Yes (Death, Hospitalization)
  Sender: FDA-Public Use
  Company Number: 000786

PATIENT
  Age: 80 Year
  Sex: Male
  Weight: 57 kg

DRUGS (8)
  1. PLETAL [Suspect]
     Indication: CEREBRAL INFARCTION
     Dosage: 100 MG, BID
     Route: 048
     Dates: start: 20070410, end: 20070519
  2. MUCOSTA (REBAMIPIDE) [Concomitant]
  3. OLMESARTAN MEDOXOMIL [Concomitant]
  4. URALYT (POTASSIUM CITRATE SODIUM CITRATE) [Concomitant]
  5. OZAGREL SODIUM (OZAGREL SODIUM) [Concomitant]
  6. SYMMETREL (AMANDADINE HYDROCHLORIDE) [Concomitant]
  7. NEUFAN (ALLOPURINOL) [Concomitant]
  8. TECHNIS (IFENPRODIL TARTRATE) [Concomitant]

REACTIONS (5)
  - SHOCK HAEMORRHAGIC [None]
  - CARDIAC ARREST [None]
  - GASTROINTESTINAL HAEMORRHAGE [None]
  - RENAL FAILURE [None]
  - PLATELET COUNT DECREASED [None]
